FAERS Safety Report 6206825-4 (Version None)
Quarter: 2009Q2

REPORT INFORMATION
  Report Type: 
  Country: None (occurrence: None)
  Receive Date: 20090528
  Receipt Date: 20090518
  Transmission Date: 20091009
  Serious: Yes (Hospitalization)
  Sender: FDA-Public Use
  Company Number: DE-MEDIMMUNE-MEDI-0008397

PATIENT
  Sex: Female
  Weight: 5 kg

DRUGS (2)
  1. SYNAGIS [Suspect]
     Indication: PREMATURE BABY
     Route: 030
     Dates: start: 20090115, end: 20090115
  2. SYNAGIS [Suspect]
     Route: 030
     Dates: start: 20090224, end: 20090224

REACTIONS (4)
  - BRONCHITIS [None]
  - DYSPNOEA [None]
  - RESPIRATORY SYNCYTIAL VIRUS INFECTION [None]
  - ROTAVIRUS INFECTION [None]
